FAERS Safety Report 18672815 (Version 1)
Quarter: 2020Q4

REPORT INFORMATION
  Report Type: Spontaneous
  Country: DE (occurrence: DE)
  Receive Date: 20201228
  Receipt Date: 20201228
  Transmission Date: 20210114
  Serious: Yes (Hospitalization, Other)
  Sender: FDA-Public Use
  Company Number: DE-MYLANLABS-2020M1103785

PATIENT
  Age: 9 Year
  Sex: Male
  Weight: 30 kg

DRUGS (2)
  1. APYDAN EXTENT [Suspect]
     Active Substance: OXCARBAZEPINE
     Indication: PARTIAL SEIZURES
     Dosage: 1-0-1
     Route: 048
     Dates: start: 201310
  2. LEVETIRACETAM. [Suspect]
     Active Substance: LEVETIRACETAM
     Indication: PARTIAL SEIZURES
     Dosage: 1-0-1
     Route: 048
     Dates: start: 201303

REACTIONS (2)
  - Status epilepticus [Unknown]
  - Oxygen saturation decreased [Unknown]

NARRATIVE: CASE EVENT DATE: 20191213
